FAERS Safety Report 6575123-1 (Version None)
Quarter: 2010Q1

REPORT INFORMATION
  Report Type: 
  Country: None (occurrence: None)
  Receive Date: 20100209
  Receipt Date: 20100126
  Transmission Date: 20100710
  Serious: Yes (Hospitalization)
  Sender: FDA-Public Use
  Company Number: ES-AMGEN-US372115

PATIENT
  Age: 42 Year
  Sex: Male

DRUGS (2)
  1. ENBREL [Suspect]
     Indication: PSORIASIS
     Route: 058
     Dates: start: 20090401, end: 20090701
  2. ENBREL [Suspect]
     Route: 058
     Dates: start: 20090701, end: 20091001

REACTIONS (1)
  - VON HIPPEL-LINDAU DISEASE [None]
